FAERS Safety Report 9714196 (Version 2)
Quarter: 2015Q3

REPORT INFORMATION
  Report Type: Spontaneous
  Country: US (occurrence: US)
  Receive Date: 20131126
  Receipt Date: 20150803
  Transmission Date: 20151125
  Serious: No
  Sender: FDA-Public Use
  Company Number: US-GILEAD-2008-0019299

PATIENT
  Age: 64 Year
  Sex: Female
  Weight: 81.65 kg

DRUGS (14)
  1. LANTUS [Concomitant]
     Active Substance: INSULIN GLARGINE
     Route: 058
  2. ULTRAM [Concomitant]
     Active Substance: TRAMADOL HYDROCHLORIDE
     Route: 048
  3. LASIX [Concomitant]
     Active Substance: FUROSEMIDE
     Route: 048
  4. REVATIO [Concomitant]
     Active Substance: SILDENAFIL CITRATE
     Route: 048
     Dates: end: 20080929
  5. METOLAZONE. [Concomitant]
     Active Substance: METOLAZONE
     Route: 048
  6. AVAPRO [Concomitant]
     Active Substance: IRBESARTAN
     Route: 048
  7. NIFEREX [Concomitant]
     Active Substance: IRON\POLYSACCHARIDES
     Route: 048
  8. NORVASC [Concomitant]
     Active Substance: AMLODIPINE BESYLATE
     Route: 048
  9. ASPIRIN. [Concomitant]
     Active Substance: ASPIRIN
     Route: 048
  10. POTASSIUM CHLORIDE. [Concomitant]
     Active Substance: POTASSIUM CHLORIDE
     Route: 048
  11. LETAIRIS [Suspect]
     Active Substance: AMBRISENTAN
     Indication: PULMONARY ARTERIAL HYPERTENSION
     Route: 048
     Dates: start: 20081031
  12. HUMALOG [Concomitant]
     Active Substance: INSULIN LISPRO
     Dosage: 100 UNITS/ML
     Route: 058
  13. XANAX [Concomitant]
     Active Substance: ALPRAZOLAM
     Route: 048
  14. AMBIEN [Concomitant]
     Active Substance: ZOLPIDEM TARTRATE
     Dosage: AT BEDTIME
     Route: 048

REACTIONS (5)
  - Chest discomfort [None]
  - Swelling [None]
  - Constipation [None]
  - Throat irritation [None]
  - Joint swelling [None]
